FAERS Safety Report 6204310-7 (Version None)
Quarter: 2009Q2

REPORT INFORMATION
  Report Type: 
  Country: None (occurrence: None)
  Receive Date: 20090518
  Receipt Date: 20090211
  Transmission Date: 20091009
  Serious: No
  Sender: FDA-Public Use
  Company Number: WAES 0901USA01628

PATIENT
  Age: 65 Year
  Sex: Male
  Weight: 90.7194 kg

DRUGS (6)
  1. JANUVIA [Suspect]
     Indication: TYPE 2 DIABETES MELLITUS
     Dosage: 100 MG/DAILY/PO
     Route: 048
     Dates: start: 20090105, end: 20090112
  2. GLIPIZIDE [Concomitant]
  3. NIFEDIAC [Concomitant]
  4. VASOTEC [Concomitant]
  5. GEMFIBROZIL [Concomitant]
  6. METFORMIN HYDROCHLORIDE [Concomitant]

REACTIONS (6)
  - ANXIETY [None]
  - BLOOD GLUCOSE INCREASED [None]
  - CHEST PAIN [None]
  - MALAISE [None]
  - NAUSEA [None]
  - PAIN [None]
